FAERS Safety Report 8009075-4 (Version None)
Quarter: 2011Q4

REPORT INFORMATION
  Report Type: 
  Country: None (occurrence: None)
  Receive Date: 20111227
  Receipt Date: 20111219
  Transmission Date: 20120403
  Serious: No
  Sender: FDA-Public Use
  Company Number: US-PFIZER INC-2011308609

PATIENT
  Sex: Female

DRUGS (2)
  1. AMLODIPINE [Suspect]
  2. LISINOPRIL [Suspect]

REACTIONS (4)
  - RESPIRATORY TRACT CONGESTION [None]
  - FLUID RETENTION [None]
  - LETHARGY [None]
  - COUGH [None]
